FAERS Safety Report 19199646 (Version 2)
Quarter: 2021Q2

REPORT INFORMATION
  Report Type: Spontaneous
  Country: JP (occurrence: JP)
  Receive Date: 20210430
  Receipt Date: 20210623
  Transmission Date: 20210717
  Serious: Yes (Hospitalization)
  Sender: FDA-Public Use
  Company Number: JP-AMGEN-JPNSP2021065464

PATIENT
  Age: 60 Year
  Sex: Male

DRUGS (18)
  1. ORKEDIA [Suspect]
     Active Substance: EVOCALCET
     Indication: HYPERPARATHYROIDISM SECONDARY
     Dosage: 1 MILLIGRAM, QD
     Route: 048
     Dates: start: 20180606, end: 20180712
  2. ORKEDIA [Suspect]
     Active Substance: EVOCALCET
     Dosage: 1 MILLIGRAM
     Route: 048
     Dates: start: 20190918, end: 20200312
  3. FOSRENOL [Concomitant]
     Active Substance: LANTHANUM CARBONATE
     Indication: PRODUCT USED FOR UNKNOWN INDICATION
     Dosage: UNK, TID
     Route: 048
  4. CALTAN [Concomitant]
     Active Substance: CALCIUM CARBONATE
     Dosage: 1000 MILLIGRAM, TID ( IMMEDIATELY AFTER EACH MEAL)
     Route: 048
     Dates: start: 20180606, end: 20200513
  5. REGPARA [Suspect]
     Active Substance: CINACALCET HYDROCHLORIDE
     Dosage: 37.5 MILLIGRAM
     Route: 048
     Dates: start: 20190424, end: 20190917
  6. CALTAN [Concomitant]
     Active Substance: CALCIUM CARBONATE
     Indication: HYPERPHOSPHATAEMIA
     Dosage: 1000 MILLIGRAM, TID (IMMEDIATELY AFTER EACH MEAL)
     Route: 048
  7. RIONA [Concomitant]
     Active Substance: FERRIC CITRATE ANHYDROUS
     Indication: HYPERPHOSPHATAEMIA
     Dosage: 500 MILLIGRAM, TID (IMMEDIATELY AFTER EACH MEAL)
     Route: 048
  8. REGPARA [Suspect]
     Active Substance: CINACALCET HYDROCHLORIDE
     Indication: HYPERPARATHYROIDISM SECONDARY
     Dosage: 25 MILLIGRAM
     Route: 048
     Dates: start: 20181226
  9. ORKEDIA [Suspect]
     Active Substance: EVOCALCET
     Dosage: 3 MILLIGRAM
     Route: 048
     Dates: start: 20180912, end: 20181106
  10. RIONA [Concomitant]
     Active Substance: FERRIC CITRATE ANHYDROUS
     Dosage: 500 MILLIGRAM, TID (IMMEDIATELY AFTER EACH MEAL)
     Route: 048
     Dates: start: 20160727
  11. ORKEDIA [Suspect]
     Active Substance: EVOCALCET
     Dosage: 2 MILLIGRAM
     Route: 048
     Dates: start: 20200313, end: 20200616
  12. ORKEDIA [Suspect]
     Active Substance: EVOCALCET
     Dosage: 3 MILLIGRAM
     Route: 048
     Dates: start: 20200617, end: 20200716
  13. ZYLORIC [Concomitant]
     Active Substance: ALLOPURINOL
     Indication: HYPERURICAEMIA
     Dosage: 100 MILLIGRAM, QD
     Route: 048
  14. ZYLORIC [Concomitant]
     Active Substance: ALLOPURINOL
     Dosage: 100 MILLIGRAM, QD, AFTER BREAKFAST
     Route: 048
     Dates: start: 20180606
  15. FOSRENOL [Concomitant]
     Active Substance: LANTHANUM CARBONATE
     Dosage: 750 MILLIGRAM (500 MG 1 PACK, 250 MG 1 PACK), TID, IMMEDIATELY AFTER EACH MEAL
     Route: 048
     Dates: start: 20180606
  16. ORKEDIA [Suspect]
     Active Substance: EVOCALCET
     Dosage: 2 MILLIGRAM
     Route: 048
     Dates: start: 20180713, end: 20180911
  17. ORKEDIA [Suspect]
     Active Substance: EVOCALCET
     Dosage: 2 MILLIGRAM
     Route: 048
     Dates: start: 20181107, end: 20181225
  18. ORKEDIA [Suspect]
     Active Substance: EVOCALCET
     Dosage: 4 MILLIGRAM
     Route: 048
     Dates: start: 20200717

REACTIONS (1)
  - Palpitations [Recovered/Resolved]

NARRATIVE: CASE EVENT DATE: 20180924
